FAERS Safety Report 22897803 (Version 2)
Quarter: 2024Q4

REPORT INFORMATION
  Report Type: Report from Study
  Country: CA (occurrence: CA)
  Receive Date: 20230903
  Receipt Date: 20241126
  Transmission Date: 20250115
  Serious: No
  Sender: SANDOZ
  Company Number: CA-002147023-NVSC2022CA043349

PATIENT
  Sex: Female

DRUGS (2)
  1. ERELZI [Suspect]
     Active Substance: ETANERCEPT-SZZS
     Indication: Psoriatic arthropathy
     Dosage: 50 MG, QW, PRE-FILLED PEN
     Route: 058
     Dates: start: 20211129
  2. ENBREL [Concomitant]
     Active Substance: ETANERCEPT
     Indication: Product used for unknown indication
     Dosage: UNK, QW
     Route: 058
     Dates: start: 20110401

REACTIONS (7)
  - Pain in extremity [Unknown]
  - Arthralgia [Unknown]
  - Finger deformity [Unknown]
  - Injection site haemorrhage [Unknown]
  - General physical health deterioration [Unknown]
  - Grip strength decreased [Unknown]
  - Loss of personal independence in daily activities [Unknown]
